FAERS Safety Report 17414294 (Version 3)
Quarter: 2020Q1

REPORT INFORMATION
  Report Type: Spontaneous
  Country: US (occurrence: US)
  Receive Date: 20200213
  Receipt Date: 20200326
  Transmission Date: 20200409
  Serious: Yes (Other)
  Sender: FDA-Public Use
  Company Number: US-VERTEX PHARMACEUTICALS-2020-001865

PATIENT
  Age: 52 Year
  Sex: Female

DRUGS (3)
  1. TOBRAMYCIN. [Concomitant]
     Active Substance: TOBRAMYCIN
  2. TRIKAFTA [Suspect]
     Active Substance: ELEXACAFTOR\IVACAFTOR\TEZACAFTOR
     Indication: CYSTIC FIBROSIS
     Dosage: 2 TABLETS (100 MG ELEXACAFTOR/50 MG TEZACAFTOR/ 75 MG IVACAFTOR) AM; 1 TABLET (150 MG IVACAFTOR)PM
     Route: 048
     Dates: start: 20200123
  3. PULMOZYME [Concomitant]
     Active Substance: DORNASE ALFA

REACTIONS (7)
  - Vulvovaginal mycotic infection [Unknown]
  - Post procedural diarrhoea [Not Recovered/Not Resolved]
  - Abdominal hernia [Not Recovered/Not Resolved]
  - Dizziness postural [Not Recovered/Not Resolved]
  - Lipoma [Unknown]
  - Rash [Unknown]
  - Fungal infection [Not Recovered/Not Resolved]

NARRATIVE: CASE EVENT DATE: 2020
